FAERS Safety Report 4268181-0 (Version None)
Quarter: 2004Q1

REPORT INFORMATION
  Report Type: 
  Country: None (occurrence: None)
  Receive Date: 20040109
  Receipt Date: 20030703
  Transmission Date: 20041129
  Serious: Yes (Hospitalization, Disabling, Other)
  Sender: FDA-Public Use
  Company Number: WAES 0307USA00400

PATIENT
  Age: 62 Year
  Sex: Female

DRUGS (17)
  1. LIPITOR [Concomitant]
     Indication: BLOOD CHOLESTEROL INCREASED
     Dates: start: 19970101
  2. CELEBREX [Concomitant]
     Dates: start: 19990101, end: 20010601
  3. VOLTAREN [Concomitant]
  4. DURAGESIC [Concomitant]
     Indication: ARTHRALGIA
     Route: 061
  5. DYAZIDE [Concomitant]
  6. METOPROLOL [Concomitant]
     Dates: start: 19980101
  7. LOPRESSOR [Concomitant]
     Dates: start: 19970101
  8. PRILOSEC [Concomitant]
  9. DENAVIR [Concomitant]
  10. VIOXX [Suspect]
     Route: 048
     Dates: start: 19990101, end: 20010101
  11. VIOXX [Suspect]
     Route: 048
     Dates: start: 20010121, end: 20010125
  12. VIOXX [Suspect]
     Route: 048
     Dates: start: 20010101, end: 20010101
  13. VIOXX [Suspect]
     Route: 048
     Dates: start: 19990101, end: 20010101
  14. VIOXX [Suspect]
     Route: 048
     Dates: start: 20010121, end: 20010125
  15. VIOXX [Suspect]
     Route: 048
     Dates: start: 20010101, end: 20010101
  16. ZOLOFT [Concomitant]
     Dates: start: 19980101
  17. TRIAMTERENE [Concomitant]

REACTIONS (17)
  - ABDOMINAL ADHESIONS [None]
  - ABSCESS [None]
  - ANAEMIA [None]
  - ANASTOMOTIC COMPLICATION [None]
  - ANGIODYSPLASIA [None]
  - CHEST DISCOMFORT [None]
  - COLITIS [None]
  - DEPRESSION [None]
  - DIVERTICULITIS [None]
  - DYSPNOEA EXERTIONAL [None]
  - HEADACHE [None]
  - LOCALISED OSTEOARTHRITIS [None]
  - PALPITATIONS [None]
  - POLYP COLORECTAL [None]
  - POST PROCEDURAL PAIN [None]
  - RHEUMATOID ARTHRITIS [None]
  - SMALL INTESTINAL HAEMORRHAGE [None]
